FAERS Safety Report 19816948 (Version 2)
Quarter: 2021Q3

REPORT INFORMATION
  Report Type: Spontaneous
  Country: DE (occurrence: DE)
  Receive Date: 20210910
  Receipt Date: 20210920
  Transmission Date: 20211014
  Serious: Yes (Other)
  Sender: FDA-Public Use
  Company Number: DE-PFIZER INC-202101113420

PATIENT
  Sex: Female

DRUGS (1)
  1. CYTOTEC [Suspect]
     Active Substance: MISOPROSTOL
     Indication: LABOUR INDUCTION
     Dosage: PLACED ON THE CERVIX AT 12 O^CLOCK
     Route: 064
     Dates: start: 2011

REACTIONS (4)
  - Anaesthetic complication [Unknown]
  - Traumatic delivery [Unknown]
  - Off label use [Unknown]
  - Uterine tachysystole [Unknown]

NARRATIVE: CASE EVENT DATE: 2011
